FAERS Safety Report 4463643-5 (Version None)
Quarter: 2004Q3

REPORT INFORMATION
  Report Type: 
  Country: None (occurrence: None)
  Receive Date: 20040929
  Receipt Date: 20040913
  Transmission Date: 20050211
  Serious: Yes (Hospitalization)
  Sender: FDA-Public Use
  Company Number: FR_040904751

PATIENT
  Age: 40 Year
  Sex: Female

DRUGS (14)
  1. NEBCINE(TOBRAMYCIN SULFATE) [Suspect]
     Indication: INFECTION
  2. COLIMYCINE(COLISTINE MESILATE SODIUM) [Concomitant]
  3. FORTUM (CEFTAZIDIME) [Concomitant]
  4. OMEPRAZOLE [Concomitant]
  5. LASIX [Concomitant]
  6. ALUMINUM HYDROXIDE AND MAGNESIUM TRISILICATE [Concomitant]
  7. ACTRAPID (INSULIN) [Concomitant]
  8. INSULATARD NPH HUMAN [Concomitant]
  9. CREON [Concomitant]
  10. UN-ALFA(ALFACALCIDOL) [Concomitant]
  11. EUCALCIC(CALCIUM CARBONATE) [Concomitant]
  12. PROGRAF [Concomitant]
  13. CELLCEPT [Concomitant]
  14. NEORECORMON(EPOETIN BETA) [Concomitant]

REACTIONS (11)
  - CONDITION AGGRAVATED [None]
  - DIALYSIS [None]
  - DYSPNOEA EXERTIONAL [None]
  - ISCHAEMIA [None]
  - RENAL DISORDER [None]
  - RENAL FAILURE ACUTE [None]
  - RENAL HYPERTROPHY [None]
  - RENAL TUBULAR NECROSIS [None]
  - RESPIRATORY DISORDER [None]
  - SHOCK HAEMORRHAGIC [None]
  - WEIGHT INCREASED [None]
